FAERS Safety Report 7635596-X (Version None)
Quarter: 2011Q3

REPORT INFORMATION
  Report Type: 
  Country: None (occurrence: None)
  Receive Date: 20110718
  Receipt Date: 20110704
  Transmission Date: 20111222
  Serious: Yes (Hospitalization)
  Sender: FDA-Public Use
  Company Number: 2011AP001344

PATIENT
  Age: 80 Year
  Sex: Female

DRUGS (3)
  1. SIMVASTATIN [Suspect]
     Indication: TYPE IIA HYPERLIPIDAEMIA
     Dosage: 40 MG;QD
  2. NICERGOLINE (NICERGOLINE) [Concomitant]
  3. DILTIAZEM [Suspect]
     Indication: HYPERTENSION
     Dosage: 60 MG;BID

REACTIONS (3)
  - DRUG INTERACTION [None]
  - RENAL IMPAIRMENT [None]
  - MYOPATHY [None]
